FAERS Safety Report 12192048 (Version 2)
Quarter: 2016Q2

REPORT INFORMATION
  Report Type: Spontaneous
  Country: CH (occurrence: CH)
  Receive Date: 20160318
  Receipt Date: 20160429
  Transmission Date: 20160815
  Serious: Yes (Hospitalization)
  Sender: FDA-Public Use
  Company Number: CH-SA-2016SA054990

PATIENT
  Age: 82 Year
  Sex: Male

DRUGS (15)
  1. TRIATEC [Suspect]
     Active Substance: RAMIPRIL
     Route: 065
     Dates: start: 20151224, end: 20160210
  2. PANTOZOL [Suspect]
     Active Substance: PANTOPRAZOLE SODIUM
     Route: 065
     Dates: start: 20151221, end: 20160203
  3. LORAZEPAM. [Suspect]
     Active Substance: LORAZEPAM
     Route: 065
     Dates: start: 201601, end: 20160203
  4. ALDACTONE [Suspect]
     Active Substance: SPIRONOLACTONE
     Route: 065
     Dates: start: 201601, end: 20160203
  5. NOPIL [Suspect]
     Active Substance: SULFAMETHOXAZOLE\TRIMETHOPRIM
     Indication: LEUKOCYTURIA
     Route: 048
     Dates: start: 20151230, end: 20160205
  6. RANIMED [Suspect]
     Active Substance: RANITIDINE HYDROCHLORIDE
     Route: 065
     Dates: start: 201601, end: 20160206
  7. PREDNISON [Concomitant]
     Active Substance: PREDNISONE
     Dates: start: 20151201
  8. STILNOX [Suspect]
     Active Substance: ZOLPIDEM TARTRATE
     Route: 065
     Dates: start: 201512, end: 20160203
  9. AUGMENTIN [Suspect]
     Active Substance: AMOXICILLIN\CLAVULANATE POTASSIUM
     Route: 065
     Dates: start: 20151230, end: 20160106
  10. CALCIMAGON-D3 [Concomitant]
     Active Substance: CALCIUM\CHOLECALCIFEROL
     Dates: start: 20151223, end: 20160205
  11. AMLODIPIN [Suspect]
     Active Substance: AMLODIPINE BESYLATE
     Route: 065
     Dates: start: 201601, end: 20160210
  12. XYZAL [Suspect]
     Active Substance: LEVOCETIRIZINE DIHYDROCHLORIDE
     Route: 065
     Dates: start: 20151221, end: 20160203
  13. PREDNISON [Concomitant]
     Active Substance: PREDNISONE
     Dates: start: 20160217
  14. VITAMIN D3 [Concomitant]
     Active Substance: CHOLECALCIFEROL
     Dates: start: 201601, end: 20160205
  15. PREDNISON [Concomitant]
     Active Substance: PREDNISONE
     Dates: start: 20151218

REACTIONS (1)
  - Drug-induced liver injury [Recovered/Resolved]

NARRATIVE: CASE EVENT DATE: 201602
